FAERS Safety Report 13927481 (Version 1)
Quarter: 2017Q3

REPORT INFORMATION
  Report Type: Spontaneous
  Country: US (occurrence: US)
  Receive Date: 20170831
  Receipt Date: 20170831
  Transmission Date: 20171127
  Serious: No
  Sender: FDA-Public Use
  Company Number: US-GLAXOSMITHKLINE-US2017132081

PATIENT
  Sex: Male

DRUGS (11)
  1. ANORO ELLIPTA [Suspect]
     Active Substance: UMECLIDINIUM BROMIDE\VILANTEROL TRIFENATATE
     Indication: PRODUCT USED FOR UNKNOWN INDICATION
     Dosage: 1 DF, 1D
     Dates: start: 201706
  2. LOVASTATIN. [Concomitant]
     Active Substance: LOVASTATIN
  3. PROLIA [Concomitant]
     Active Substance: DENOSUMAB
  4. LEVODOPA [Concomitant]
     Active Substance: LEVODOPA
  5. METFORMIN [Concomitant]
     Active Substance: METFORMIN HYDROCHLORIDE
  6. CALCIUM [Concomitant]
     Active Substance: CALCIUM
  7. COUMADIN [Concomitant]
     Active Substance: WARFARIN SODIUM
  8. ENTACAPONE. [Concomitant]
     Active Substance: ENTACAPONE
  9. FOLIC ACID. [Concomitant]
     Active Substance: FOLIC ACID
  10. METOPROLOL. [Concomitant]
     Active Substance: METOPROLOL
  11. SOTALOL. [Concomitant]
     Active Substance: SOTALOL

REACTIONS (2)
  - Sputum discoloured [Recovered/Resolved]
  - Productive cough [Unknown]
